FAERS Safety Report 8133210-0 (Version None)
Quarter: 2012Q1

REPORT INFORMATION
  Report Type: 
  Country: None (occurrence: None)
  Receive Date: 20120213
  Receipt Date: 20120208
  Transmission Date: 20120608
  Serious: Yes (Other)
  Sender: FDA-Public Use
  Company Number: PHHY2012BR011258

PATIENT
  Sex: Male
  Weight: 70 kg

DRUGS (1)
  1. EXFORGE HCT [Suspect]
     Indication: HYPERTENSION
     Dosage: 1 DF X (160/10/12.5 MG), UNK
     Route: 048

REACTIONS (2)
  - DIABETES MELLITUS [None]
  - PROSTATE CANCER [None]
